FAERS Safety Report 6165714-4 (Version None)
Quarter: 2009Q2

REPORT INFORMATION
  Report Type: 
  Country: None (occurrence: None)
  Receive Date: 20090423
  Receipt Date: 20090422
  Transmission Date: 20091009
  Serious: Yes (Hospitalization)
  Sender: FDA-Public Use
  Company Number: FR-WYE-G03548509

PATIENT
  Sex: Male

DRUGS (2)
  1. ADVIL [Suspect]
     Route: 048
     Dates: start: 20090317, end: 20090317
  2. KETOPROFEN [Suspect]
     Route: 048
     Dates: start: 20090316, end: 20090316

REACTIONS (1)
  - RENAL FAILURE ACUTE [None]
